FAERS Safety Report 7009129-5 (Version None)
Quarter: 2010Q3

REPORT INFORMATION
  Report Type: 
  Country: None (occurrence: None)
  Receive Date: 20100923
  Receipt Date: 20091119
  Transmission Date: 20110219
  Serious: No
  Sender: FDA-Public Use
  Company Number: US-MYLANLABS-2009S1020303

PATIENT
  Age: 62 Year
  Sex: Female

DRUGS (2)
  1. ENALAPRIL MALEATE [Suspect]
     Indication: BLOOD PRESSURE INCREASED
     Route: 048
     Dates: end: 20091001
  2. ENALAPRIL MALEATE [Suspect]
     Route: 048
     Dates: start: 20091001

REACTIONS (2)
  - DRUG EFFECT DECREASED [None]
  - HYPERTENSION [None]
